FAERS Safety Report 5515574-7 (Version None)
Quarter: 2007Q4

REPORT INFORMATION
  Report Type: 
  Country: None (occurrence: None)
  Receive Date: 20071113
  Receipt Date: 20070611
  Transmission Date: 20080405
  Serious: No
  Sender: FDA-Public Use
  Company Number: A0655044A

PATIENT
  Sex: Female

DRUGS (8)
  1. COREG [Suspect]
     Indication: ATRIAL FIBRILLATION
     Dosage: 3.125MG TWICE PER DAY
     Route: 048
  2. COZAAR [Concomitant]
  3. DIURETIC [Concomitant]
  4. COUMADIN [Concomitant]
  5. LIPITOR [Concomitant]
  6. ZETIA [Concomitant]
  7. METFORMIN HCL [Concomitant]
  8. UNKNOWN MEDICATION [Concomitant]

REACTIONS (1)
  - FLUSHING [None]
